FAERS Safety Report 5067204-9 (Version None)
Quarter: 2006Q3

REPORT INFORMATION
  Report Type: 
  Country: None (occurrence: None)
  Receive Date: 20060727
  Receipt Date: 20060713
  Transmission Date: 20061208
  Serious: Yes (Hospitalization)
  Sender: FDA-Public Use
  Company Number: S06-SWI-02900-01

PATIENT
  Age: 94 Year
  Sex: Male

DRUGS (9)
  1. ESCITALOPRAM OXALATE [Suspect]
     Dosage: 10 MG QD PO
     Route: 048
  2. TRAMADOL HCL [Suspect]
     Indication: PAIN
     Dosage: 100 MG QD PO
     Route: 048
     Dates: start: 20060311, end: 20060327
  3. BUPRENORPHINE HCL [Suspect]
     Indication: PAIN
     Dosage: 0.4 MG QD SL
     Route: 060
     Dates: start: 20060328, end: 20060404
  4. TRILEPTAL [Suspect]
     Indication: PAIN
     Dosage: 150 MG QD PO
     Route: 048
  5. SURMONTIL [Concomitant]
  6. BRUFEN (IBUPROFEN) [Concomitant]
  7. XATRAL (ALFUZOSIN) [Concomitant]
  8. RISPERDAL [Concomitant]
  9. LYRICA [Concomitant]

REACTIONS (5)
  - CONFUSIONAL STATE [None]
  - DELIRIUM [None]
  - DISORIENTATION [None]
  - FATIGUE [None]
  - HALLUCINATION [None]
